FAERS Safety Report 9357169 (Version 1)
Quarter: 2013Q2

REPORT INFORMATION
  Report Type: Spontaneous
  Country: US (occurrence: US)
  Receive Date: 20130620
  Receipt Date: 20130620
  Transmission Date: 20140414
  Serious: Yes (Other)
  Sender: FDA-Public Use
  Company Number: US-BIOGENIDEC-2013BI052675

PATIENT
  Sex: Female

DRUGS (1)
  1. AVONEX [Suspect]
     Indication: MULTIPLE SCLEROSIS
     Route: 030
     Dates: start: 20110608, end: 20110627

REACTIONS (4)
  - Anaphylactic reaction [Unknown]
  - Frustration [Unknown]
  - Injection site reaction [Unknown]
  - Hypersensitivity [Unknown]
